FAERS Safety Report 8265268-2 (Version None)
Quarter: 2012Q2

REPORT INFORMATION
  Report Type: 
  Country: None (occurrence: None)
  Receive Date: 20120406
  Receipt Date: 20120328
  Transmission Date: 20120825
  Serious: Yes (Life-Threatening, Hospitalization, Other)
  Sender: FDA-Public Use
  Company Number: TH-ROCHE-346864

PATIENT
  Sex: Female
  Weight: 55 kg

DRUGS (3)
  1. HERCEPTIN [Suspect]
     Dosage: LOADING DOSE.
     Route: 042
  2. HERCEPTIN [Suspect]
     Indication: BREAST CANCER
     Dosage: MAINTENANCE DOSE.
     Route: 042
     Dates: start: 20030502, end: 20030905
  3. HERCEPTIN [Suspect]
     Route: 042

REACTIONS (2)
  - PERICARDITIS [None]
  - SYSTEMIC LUPUS ERYTHEMATOSUS [None]
